FAERS Safety Report 7962931-5 (Version None)
Quarter: 2011Q4

REPORT INFORMATION
  Report Type: 
  Country: None (occurrence: None)
  Receive Date: 20111207
  Receipt Date: 20111129
  Transmission Date: 20120403
  Serious: Yes (Hospitalization)
  Sender: FDA-Public Use
  Company Number: US-ASTRAZENECA-2010SE23030

PATIENT
  Age: 48 Year
  Sex: Male

DRUGS (14)
  1. PHILLIPS COLON HEALTH [Concomitant]
  2. SEROQUEL [Suspect]
     Route: 048
     Dates: start: 20070101, end: 20100401
  3. SEROQUEL [Suspect]
     Route: 048
     Dates: start: 20100401
  4. SEROQUEL [Suspect]
     Route: 048
     Dates: start: 20040101, end: 20070101
  5. PROPRANOLOL [Concomitant]
  6. SEROQUEL [Suspect]
     Route: 048
     Dates: end: 20100601
  7. CELEXA [Concomitant]
  8. SYMBICORT [Concomitant]
  9. VITAMIN TAB [Concomitant]
  10. LITHIUM [Concomitant]
  11. SEROQUEL [Suspect]
     Indication: BIPOLAR DISORDER
     Route: 048
  12. LEVOTHYROXINE SODIUM [Concomitant]
  13. PREVACID [Concomitant]
  14. ASPIRIN [Concomitant]

REACTIONS (18)
  - THYROID DISORDER [None]
  - ANXIETY [None]
  - DRUG DEPENDENCE [None]
  - MIGRAINE [None]
  - DEHYDRATION [None]
  - RENAL DISORDER [None]
  - RESPIRATORY DISORDER [None]
  - INSOMNIA [None]
  - DIZZINESS [None]
  - DRUG DOSE OMISSION [None]
  - LOGORRHOEA [None]
  - CHILLS [None]
  - COLD SWEAT [None]
  - PYREXIA [None]
  - NAUSEA [None]
  - WITHDRAWAL SYNDROME [None]
  - LIVER DISORDER [None]
  - VOMITING [None]
